FAERS Safety Report 5531709-4 (Version None)
Quarter: 2007Q4

REPORT INFORMATION
  Report Type: 
  Country: None (occurrence: None)
  Receive Date: 20071128
  Receipt Date: 20071118
  Transmission Date: 20080405
  Serious: Yes (Other)
  Sender: FDA-Public Use
  Company Number: CHPA2007US12389

PATIENT
  Age: 86 Year
  Sex: Female

DRUGS (1)
  1. FERROUS SULFATE TAB [Suspect]
     Indication: ANAEMIA
     Dosage: 160 MG, ORAL
     Route: 048
     Dates: start: 20071031, end: 20071118

REACTIONS (3)
  - ASTHENIA [None]
  - DEHYDRATION [None]
  - DIARRHOEA [None]
